FAERS Safety Report 8708729 (Version 5)
Quarter: 2013Q1

REPORT INFORMATION
  Report Type: Spontaneous
  Country: US (occurrence: US)
  Receive Date: 20120806
  Receipt Date: 20130207
  Transmission Date: 20140127
  Serious: Yes (Hospitalization, Disabling, Other)
  Sender: FDA-Public Use
  Company Number: US-009507513-1208USA000207

PATIENT
  Sex: Female
  Weight: 63.49 kg

DRUGS (3)
  1. NUVARING [Suspect]
     Indication: CONTRACEPTION
     Dosage: IN 3 WEEKS/OUT 1 WEEK
     Route: 067
     Dates: start: 2004, end: 20090806
  2. NUVARING [Suspect]
     Indication: MENSTRUATION IRREGULAR
  3. NUVARING [Suspect]
     Indication: MENORRHAGIA

REACTIONS (9)
  - Lung disorder [Unknown]
  - Pulmonary embolism [Unknown]
  - Ovarian cyst [Unknown]
  - Antiphospholipid syndrome [Unknown]
  - Headache [Unknown]
  - Allergy to metals [Unknown]
  - Hypertriglyceridaemia [Unknown]
  - Nausea [Recovered/Resolved]
  - Vomiting [Unknown]
